FAERS Safety Report 8573324-4 (Version None)
Quarter: 2012Q3

REPORT INFORMATION
  Report Type: 
  Country: None (occurrence: None)
  Receive Date: 20120806
  Receipt Date: 20120726
  Transmission Date: 20120928
  Serious: Yes (Other)
  Sender: FDA-Public Use
  Company Number: US-ASTRAZENECA-2012SE53499

PATIENT
  Sex: Female

DRUGS (4)
  1. NEXIUM [Suspect]
     Route: 048
  2. CLONAZEPAM [Concomitant]
  3. SEROQUEL XR [Suspect]
     Route: 048
  4. PRILOSEC OTC [Suspect]
     Route: 048

REACTIONS (4)
  - SUICIDAL IDEATION [None]
  - DRUG INEFFECTIVE [None]
  - DYSPEPSIA [None]
  - DRUG DOSE OMISSION [None]
